FAERS Safety Report 9783239 (Version 1)
Quarter: 2013Q4

REPORT INFORMATION
  Report Type: Spontaneous
  Country: FR (occurrence: FR)
  Receive Date: 20131226
  Receipt Date: 20131226
  Transmission Date: 20140711
  Serious: Yes (Life-Threatening, Hospitalization, Other)
  Sender: FDA-Public Use
  Company Number: FR-PFIZER INC-2013369202

PATIENT
  Age: 84 Year
  Sex: Female

DRUGS (7)
  1. CORDARONE [Suspect]
     Indication: ATRIAL FIBRILLATION
     Dosage: 600 MG, DAILY
     Route: 048
     Dates: start: 20131112, end: 20131114
  2. CORDARONE [Suspect]
     Dosage: 200 MG, DAILY
     Route: 048
     Dates: start: 20131115, end: 20131125
  3. PREVISCAN [Concomitant]
     Dosage: UNK
  4. TEMERIT [Concomitant]
     Dosage: UNK
  5. TRIATEC [Concomitant]
     Dosage: UNK
  6. LASILIX [Concomitant]
     Dosage: UNK
  7. BETAHISTINE [Concomitant]
     Dosage: UNK

REACTIONS (4)
  - Hepatitis [Recovered/Resolved]
  - Right ventricular failure [Unknown]
  - Acute prerenal failure [Unknown]
  - Dehydration [Unknown]
